FAERS Safety Report 14025082 (Version 1)
Quarter: 2017Q3

REPORT INFORMATION
  Report Type: Spontaneous
  Country: FR (occurrence: FR)
  Receive Date: 20170929
  Receipt Date: 20170929
  Transmission Date: 20171128
  Serious: Yes (Life-Threatening)
  Sender: FDA-Public Use
  Company Number: FR-009507513-1709FRA014258

PATIENT
  Age: 62 Year
  Sex: Female

DRUGS (2)
  1. JANUMET [Suspect]
     Active Substance: METFORMIN HYDROCHLORIDE\SITAGLIPTIN PHOSPHATE
     Indication: DIABETES MELLITUS
     Dosage: 2 DF, QD (START DATE: MORE THAN 1 YEAR BEFORE)
     Route: 048
     Dates: end: 20170815
  2. TERALITHE [Suspect]
     Active Substance: LITHIUM CARBONATE
     Indication: BIPOLAR DISORDER
     Dosage: 1.5 DF, QD (START DATE: MORE THAN 3 YEARS BEFORE)
     Route: 048
     Dates: end: 20170815

REACTIONS (7)
  - Cardio-respiratory arrest [Recovering/Resolving]
  - Toxicity to various agents [Recovering/Resolving]
  - Confusional state [Recovering/Resolving]
  - Antipsychotic drug level increased [Recovering/Resolving]
  - Tremor [Recovering/Resolving]
  - Renal tubular disorder [Recovering/Resolving]
  - Seizure [Recovering/Resolving]

NARRATIVE: CASE EVENT DATE: 201708
